FAERS Safety Report 6523476-2 (Version None)
Quarter: 2009Q4

REPORT INFORMATION
  Report Type: 
  Country: None (occurrence: None)
  Receive Date: 20091231
  Receipt Date: 20091218
  Transmission Date: 20100525
  Serious: Yes (Other)
  Sender: FDA-Public Use
  Company Number: PHHY2009JP52046

PATIENT

DRUGS (14)
  1. TEGRETOL [Suspect]
     Indication: SCHIZOPHRENIA
     Dosage: 500 MG
  2. TEGRETOL [Interacting]
     Dosage: 1000 MG
  3. TEGRETOL [Interacting]
     Dosage: 900 MG
  4. TEGRETOL [Interacting]
     Dosage: 300 MG
  5. HALOPERIDOL [Interacting]
     Dosage: 32 MG DAILY
  6. LEVOMEPROMAZINE MALEATE [Concomitant]
     Indication: SCHIZOPHRENIA
     Dosage: 100 MG
  7. LEVOMEPROMAZINE MALEATE [Concomitant]
     Dosage: 130 MG
  8. SEROQUEL [Concomitant]
     Indication: SCHIZOPHRENIA
     Dosage: 600 MG
  9. SEROQUEL [Concomitant]
     Dosage: 400 MG
  10. PEROSPIRONE HYDROCHLORIDE [Concomitant]
     Dosage: 48 MG
  11. RISPERIDONE [Concomitant]
     Indication: SCHIZOPHRENIA
     Dosage: 12 MG
  12. RISPERIDONE [Concomitant]
     Dosage: 10 MG
  13. SULPIRIDE [Concomitant]
     Indication: SCHIZOPHRENIA
     Dosage: 800 MG
  14. SULPIRIDE [Concomitant]
     Dosage: 1000 MG

REACTIONS (8)
  - ANAEMIA [None]
  - DRUG INTERACTION [None]
  - DRUG LEVEL DECREASED [None]
  - HALLUCINATION, AUDITORY [None]
  - LEUKOPENIA [None]
  - MENTAL DISORDER [None]
  - PSYCHOMOTOR HYPERACTIVITY [None]
  - SOLILOQUY [None]
